FAERS Safety Report 16883055 (Version 2)
Quarter: 2019Q4

REPORT INFORMATION
  Report Type: Report from Study
  Country: CA (occurrence: CA)
  Receive Date: 20191004
  Receipt Date: 20191219
  Transmission Date: 20200122
  Serious: No
  Sender: FDA-Public Use
  Company Number: CA-ASTRAZENECA-2019SF38601

PATIENT
  Sex: Male

DRUGS (4)
  1. PREDNISONE. [Concomitant]
     Active Substance: PREDNISONE
     Indication: ASTHMA
     Dates: start: 2017, end: 201906
  2. NUCALA [Concomitant]
     Active Substance: MEPOLIZUMAB
     Indication: ASTHMA
     Dates: start: 2017, end: 201808
  3. NUCALA [Concomitant]
     Active Substance: MEPOLIZUMAB
     Indication: ADJUVANT THERAPY
     Dates: start: 2017, end: 201808
  4. FASENRA [Suspect]
     Active Substance: BENRALIZUMAB
     Indication: ASTHMA
     Dosage: 30.0MG UNKNOWN
     Route: 058
     Dates: start: 20190214

REACTIONS (1)
  - Musculoskeletal stiffness [Recovering/Resolving]
